FAERS Safety Report 7523188-2 (Version None)
Quarter: 2011Q2

REPORT INFORMATION
  Report Type: 
  Country: None (occurrence: None)
  Receive Date: 20110603
  Receipt Date: 20110531
  Transmission Date: 20111010
  Serious: Yes (Hospitalization)
  Sender: FDA-Public Use
  Company Number: KR-ELI_LILLY_AND_COMPANY-KR201106000512

PATIENT
  Age: 73 Year
  Sex: Female
  Weight: 52 kg

DRUGS (4)
  1. HUMALOG MIX 75/25 [Suspect]
     Indication: TYPE 2 DIABETES MELLITUS
     Dosage: 20 U, BID
     Route: 058
     Dates: start: 20110501
  2. HUMALOG MIX 75/25 [Suspect]
     Dosage: 16 U, QD
  3. FORTEO [Suspect]
     Indication: OSTEOPOROSIS
     Dosage: UNK
     Dates: start: 20110401
  4. HUMALOG MIX 75/25 [Suspect]
     Dosage: 10 U, QD

REACTIONS (3)
  - FALL [None]
  - HYPOGLYCAEMIA [None]
  - SPINAL FRACTURE [None]
